FAERS Safety Report 11098915 (Version 1)
Quarter: 2015Q2

REPORT INFORMATION
  Report Type: Spontaneous
  Country: US (occurrence: US)
  Receive Date: 20150508
  Receipt Date: 20150508
  Transmission Date: 20150821
  Serious: Yes (Other)
  Sender: FDA-Public Use
  Company Number: US-ACCORD-030559

PATIENT
  Sex: Female

DRUGS (2)
  1. MELPHALAN [Suspect]
     Active Substance: MELPHALAN
     Indication: RETINOBLASTOMA
     Dosage: 4 CYCLES OF SSIOAC (AT 1-MONTH INTERVALS) WITH MELPHALAN (5 MG/20 ML
  2. TOPOTECAN/TOPOTECAN HYDROCHLORIDE [Suspect]
     Active Substance: TOPOTECAN\TOPOTECAN HYDROCHLORIDE
     Indication: RETINOBLASTOMA
     Dosage: 4 CYCLES OF SSIOAC (AT 1-MONTH INTERVALS) 0.3 MG/20 ML

REACTIONS (5)
  - Iris atrophy [Unknown]
  - Off label use [Unknown]
  - Ischaemia [Unknown]
  - Scleritis [Unknown]
  - Enophthalmos [Unknown]
